FAERS Safety Report 9006757 (Version 3)
Quarter: 2013Q4

REPORT INFORMATION
  Report Type: Spontaneous
  Country: US (occurrence: US)
  Receive Date: 20130110
  Receipt Date: 20131118
  Transmission Date: 20140711
  Serious: Yes (Hospitalization, Other)
  Sender: FDA-Public Use
  Company Number: US-009507513-1301USA002717

PATIENT
  Sex: Female
  Weight: 55.33 kg

DRUGS (8)
  1. FOSAMAX [Suspect]
     Indication: OSTEOPENIA
     Dosage: UNK
     Route: 048
     Dates: start: 2002
  2. FOSAMAX [Suspect]
     Indication: OSTEOPOROSIS
     Dosage: 70 MG, QW
     Route: 048
     Dates: start: 200408, end: 200705
  3. FOSAMAX PLUS D [Suspect]
     Indication: OSTEOPENIA
     Dosage: 70 MG/ 2800 IU, QW
     Route: 048
     Dates: start: 200705, end: 200903
  4. ALENDRONATE SODIUM [Suspect]
     Indication: OSTEOPENIA
     Dosage: 70 MG, QW
     Route: 048
     Dates: start: 20090204, end: 201012
  5. CALCIUM (UNSPECIFIED) (+) VITAMIN D (UNSPECIFIED) [Concomitant]
     Indication: OSTEOPENIA
     Dosage: 1200-1500 MG DAILY
     Dates: start: 2000
  6. OMEPRAZOLE [Concomitant]
     Dosage: UNK, PRN
     Dates: start: 2006
  7. COZAAR [Concomitant]
     Indication: HYPERTENSION
     Dosage: 25-50 MG, UNK
     Route: 048
  8. EVISTA [Concomitant]
     Indication: OSTEOPENIA
     Dosage: 60 MG, DAILY
     Route: 048
     Dates: start: 200709

REACTIONS (18)
  - Femur fracture [Unknown]
  - Intramedullary rod insertion [Unknown]
  - Intramedullary rod insertion [Unknown]
  - Femur fracture [Recovered/Resolved]
  - Pain in extremity [Unknown]
  - Bursitis [Unknown]
  - Hyperlipidaemia [Unknown]
  - Adverse event [Unknown]
  - Irritable bowel syndrome [Unknown]
  - Bursitis [Unknown]
  - Osteoarthritis [Unknown]
  - Osteoarthritis [Unknown]
  - Seborrhoeic keratosis [Unknown]
  - Diverticulum intestinal [Unknown]
  - Local swelling [Unknown]
  - Anaemia [Unknown]
  - Myositis ossificans [Unknown]
  - Gastritis [Unknown]
